FAERS Safety Report 15282078 (Version 1)
Quarter: 2018Q3

REPORT INFORMATION
  Report Type: Spontaneous
  Country: US (occurrence: US)
  Receive Date: 20180731
  Receipt Date: 20180731
  Transmission Date: 20181010
  Serious: Yes (Disabling)
  Sender: FDA-Public Use
  Company Number: None

PATIENT
  Age: 48 Year
  Sex: Female
  Weight: 112.5 kg

DRUGS (8)
  1. VITAMIN D [Concomitant]
     Active Substance: CHOLECALCIFEROL
  2. INSULIN [Concomitant]
     Active Substance: INSULIN NOS
  3. METFORMIN [Concomitant]
     Active Substance: METFORMIN HYDROCHLORIDE
  4. PIAGLITAZOLE [Concomitant]
  5. SINGULAIR [Concomitant]
     Active Substance: MONTELUKAST SODIUM
  6. DRAMAMINE [Suspect]
     Active Substance: DIMENHYDRINATE
     Indication: MOTION SICKNESS
     Dosage: ?          QUANTITY:1 TABLET(S);?
     Route: 048
     Dates: start: 20180725, end: 20180725
  7. VALSARTAN. [Concomitant]
     Active Substance: VALSARTAN
  8. DOXYCYCLINE. [Concomitant]
     Active Substance: DOXYCYCLINE

REACTIONS (11)
  - Fatigue [None]
  - Somnolence [None]
  - Visual impairment [None]
  - Vision blurred [None]
  - Impaired driving ability [None]
  - Tremor [None]
  - Hallucination, visual [None]
  - Abnormal dreams [None]
  - Mental impairment [None]
  - Fear [None]
  - Stress [None]

NARRATIVE: CASE EVENT DATE: 20180725
